FAERS Safety Report 9592315 (Version 1)
Quarter: 2013Q3

REPORT INFORMATION
  Report Type: Spontaneous
  Country: US (occurrence: None)
  Receive Date: 20130930
  Receipt Date: 20130930
  Transmission Date: 20140515
  Serious: Yes (Other)
  Sender: FDA-Public Use
  Company Number: 1000047423

PATIENT
  Age: 59 Year
  Sex: Female

DRUGS (7)
  1. LINZESS [Suspect]
     Indication: CONSTIPATION
     Route: 048
     Dates: start: 20130719
  2. PRISTIQ (DESVENLAFAXINE SUCCINATE) [Concomitant]
  3. WELLBUTRIN (BUPROPION HYDROCHLORIDE) [Concomitant]
  4. SYNTHROID (LEVOTHYROXINE SODIUM) [Concomitant]
  5. CALCIUM (CALCIUM) [Concomitant]
  6. VITAMIN D3 (COLECALCIFEROL) [Concomitant]
  7. OMEPRAZOLE (OMEPRAZOLE) [Concomitant]

REACTIONS (1)
  - Drug ineffective [None]
